FAERS Safety Report 9384523 (Version 1)
Quarter: 2013Q3

REPORT INFORMATION
  Report Type: Spontaneous
  Country: US (occurrence: US)
  Receive Date: 20130705
  Receipt Date: 20130705
  Transmission Date: 20140515
  Serious: Yes (Hospitalization)
  Sender: FDA-Public Use
  Company Number: US-SUN PHARMACEUTICAL INDUSTRIES LTD-2013SUN00942

PATIENT
  Age: 32 Year
  Sex: Female

DRUGS (4)
  1. GABAPENTIN CAPSULES 100MG [Suspect]
     Indication: PRODUCT USED FOR UNKNOWN INDICATION
     Route: 065
  2. METHADONE [Concomitant]
  3. SERTRALINE [Concomitant]
  4. TRAMADOL [Concomitant]

REACTIONS (8)
  - Drug abuse [Unknown]
  - Serotonin syndrome [Unknown]
  - Fall [None]
  - Joint injury [Unknown]
  - Blood creatine phosphokinase increased [Unknown]
  - Myoclonus [Unknown]
  - Convulsion [Unknown]
  - Tachycardia [Unknown]
